FAERS Safety Report 18047034 (Version 1)
Quarter: 2020Q3

REPORT INFORMATION
  Report Type: Other
  Country: US (occurrence: US)
  Receive Date: 20200720
  Receipt Date: 20200720
  Transmission Date: 20201103
  Serious: No
  Sender: FDA-Public Use
  Company Number: US-ROCHE-2562616

PATIENT
  Age: 66 Year
  Sex: Male

DRUGS (3)
  1. ATEZOLIZUMAB. [Suspect]
     Active Substance: ATEZOLIZUMAB
     Indication: ANAPLASTIC THYROID CANCER
     Route: 041
  2. COBIMETINIB. [Concomitant]
     Active Substance: COBIMETINIB
     Dosage: 60 MG DAILY FOR 21 DAYS
     Route: 048
  3. VEMURAFENIB. [Concomitant]
     Active Substance: VEMURAFENIB
     Dosage: BY A MAINTENANCE DOSE OF 720 MG, TWICE DAILY FOR 7 DAYS
     Route: 065

REACTIONS (1)
  - Lichenoid keratosis [Unknown]
